FAERS Safety Report 26109374 (Version 1)
Quarter: 2025Q4

REPORT INFORMATION
  Report Type: Spontaneous
  Country: RS (occurrence: RS)
  Receive Date: 20251201
  Receipt Date: 20251201
  Transmission Date: 20260117
  Serious: Yes (Other)
  Sender: MYLAN
  Company Number: RS-MYLANLABS-2025M1100895

PATIENT
  Age: 28 Year
  Sex: Male

DRUGS (5)
  1. CLOZAPINE [Suspect]
     Active Substance: CLOZAPINE
     Indication: Schizophrenia
     Dosage: 12.5 MILLIGRAM, BID (DAY 1)
  2. CLOZAPINE [Suspect]
     Active Substance: CLOZAPINE
     Dosage: 25 MILLIGRAM, BID (DAY 2)
  3. CLOZAPINE [Suspect]
     Active Substance: CLOZAPINE
     Dosage: UNK (THE DOSE GRADUALLY INCREASED BY 25 TO 50 MG PER DAY UP TO 300 MG/DAY)
  4. LORAZEPAM [Concomitant]
     Active Substance: LORAZEPAM
     Indication: Schizophrenia
     Dosage: 2.5 MILLIGRAM, TID
  5. ZOLPIDEM [Concomitant]
     Active Substance: ZOLPIDEM TARTRATE
     Indication: Schizophrenia
     Dosage: 10 MILLIGRAM, QD

REACTIONS (8)
  - Vision blurred [Unknown]
  - Feeling abnormal [Unknown]
  - Libido decreased [Unknown]
  - Dizziness postural [Unknown]
  - Drooling [Unknown]
  - Increased appetite [Unknown]
  - Weight increased [Unknown]
  - Somnolence [Unknown]
